FAERS Safety Report 19709092 (Version 1)
Quarter: 2021Q3

REPORT INFORMATION
  Report Type: Report from Study
  Country: DE (occurrence: DE)
  Receive Date: 20210817
  Receipt Date: 20210817
  Transmission Date: 20211014
  Serious: Yes (Other)
  Sender: FDA-Public Use
  Company Number: DE-MYLANLABS-2021M1052565

PATIENT
  Age: 79 Year
  Sex: Female

DRUGS (2)
  1. ARTICAINE [Suspect]
     Active Substance: ARTICAINE
     Indication: LOCAL ANAESTHESIA
     Dosage: COMBINED WITH EPINEPHRINE AT RATIO 1:200000 AND INJECTED A TOTAL OF 5ML..
     Route: 058
  2. EPINEPHRINE. [Suspect]
     Active Substance: EPINEPHRINE
     Indication: VASOPRESSIVE THERAPY
     Dosage: COMBINED WITH ARTICAINE AT RATIO 1:200000 AND INJECTED A TOTAL OF 5ML..
     Route: 058

REACTIONS (2)
  - Oxygen saturation decreased [Recovered/Resolved]
  - Peripheral ischaemia [Recovered/Resolved]
